FAERS Safety Report 25315733 (Version 1)
Quarter: 2025Q2

REPORT INFORMATION
  Report Type: Spontaneous
  Country: AT (occurrence: AT)
  Receive Date: 20250515
  Receipt Date: 20250515
  Transmission Date: 20250717
  Serious: Yes (Other)
  Sender: ABBVIE
  Company Number: AT-ABBVIE-6282201

PATIENT
  Age: 29 Year
  Sex: Female

DRUGS (1)
  1. ELAHERE [Suspect]
     Active Substance: MIRVETUXIMAB SORAVTANSINE-GYNX
     Indication: Ovarian cancer
     Route: 042
     Dates: start: 202412

REACTIONS (8)
  - Blindness [Unknown]
  - Corneal deposits [Unknown]
  - Photophobia [Unknown]
  - Visual impairment [Unknown]
  - Polyneuropathy [Unknown]
  - Corneal disorder [Unknown]
  - Dry eye [Unknown]
  - Photosensitivity reaction [Unknown]

NARRATIVE: CASE EVENT DATE: 20250301
